FAERS Safety Report 6309101-4 (Version None)
Quarter: 2009Q3

REPORT INFORMATION
  Report Type: 
  Country: None (occurrence: None)
  Receive Date: 20090814
  Receipt Date: 20070706
  Transmission Date: 20100115
  Serious: Yes (Other)
  Sender: FDA-Public Use
  Company Number: US-ASTRAZENECA-2006UW25777

PATIENT
  Age: 15240 Day
  Sex: Male
  Weight: 93 kg

DRUGS (19)
  1. SEROQUEL [Suspect]
     Indication: DEPRESSION
     Route: 048
     Dates: start: 20020810
  2. SEROQUEL [Suspect]
     Indication: ANXIETY
     Route: 048
     Dates: start: 20020810
  3. SEROQUEL [Suspect]
     Indication: MENTAL DISORDER
     Route: 048
     Dates: start: 20020810
  4. SEROQUEL [Suspect]
     Route: 048
     Dates: start: 20041210
  5. SEROQUEL [Suspect]
     Route: 048
     Dates: start: 20041210
  6. SEROQUEL [Suspect]
     Route: 048
     Dates: start: 20041210
  7. WELLBUTRIN XL [Concomitant]
     Indication: AFFECTIVE DISORDER
  8. CEPHALEXIN [Concomitant]
     Route: 048
  9. ASPIRIN [Concomitant]
     Indication: MYOCARDIAL INFARCTION
     Route: 048
  10. ASPIRIN [Concomitant]
     Indication: CEREBROVASCULAR ACCIDENT
     Route: 048
  11. BUPROPION HCL [Concomitant]
     Route: 048
  12. TRAZODONE HCL [Concomitant]
     Indication: SLEEP DISORDER
     Dosage: DOSE ONE TABLET AS REQUIRED
     Route: 048
  13. SIMVASTATIN [Concomitant]
     Indication: BLOOD CHOLESTEROL
     Dosage: DOSE TAKE ONE-HALF TABLET BY MOUTH AT BEDTIME
     Route: 048
  14. OMEPRAZOLE [Concomitant]
     Indication: ABDOMINAL DISCOMFORT
     Route: 048
  15. GLIPIZIDE [Concomitant]
     Indication: DIABETES MELLITUS
     Dosage: DOSE 10MG TO 20 MG DAILY
     Route: 048
  16. METFORMIN HCL [Concomitant]
     Indication: DIABETES MELLITUS
     Dosage: STRENGTH 500MG, 1000MG.  DOSE 500MG TO 2000MG.
     Route: 048
  17. ROSIGLITAZONE MALEATE [Concomitant]
     Dosage: DOSE TAKE ONE-HALF TABLET BY MOUTH EVERY DAY
     Route: 048
  18. SERTRALINE HCL [Concomitant]
     Indication: DEPRESSION
     Dosage: DOSE TAKE 1/2 TABLET AT BEDTIME
     Route: 048
  19. BUSPIRONE HCL [Concomitant]
     Indication: ANXIETY
     Dosage: DOSE TAKE ONE TABLET TWICE A DAY AND TAKE TWO TABLETS AT BEDTIME

REACTIONS (5)
  - DIABETES MELLITUS [None]
  - DIABETIC KETOACIDOSIS [None]
  - DIABETIC NEUROPATHY [None]
  - NEUROLEPTIC MALIGNANT SYNDROME [None]
  - TARDIVE DYSKINESIA [None]
